FAERS Safety Report 7449976-9 (Version None)
Quarter: 2011Q2

REPORT INFORMATION
  Report Type: 
  Country: None (occurrence: None)
  Receive Date: 20110421
  Receipt Date: 20110411
  Transmission Date: 20111010
  Serious: No
  Sender: FDA-Public Use
  Company Number: 2011-00173

PATIENT
  Age: 31 Year
  Sex: Female
  Weight: 102.0593 kg

DRUGS (1)
  1. OXYMETAZOLINE HCL [Suspect]
     Dosage: AS DIRECTED, 4 DAYS
     Dates: start: 20110405, end: 20110408

REACTIONS (2)
  - AGEUSIA [None]
  - ANOSMIA [None]
